FAERS Safety Report 4381385-1 (Version None)
Quarter: 2004Q2

REPORT INFORMATION
  Report Type: 
  Country: None (occurrence: None)
  Receive Date: 20040617
  Receipt Date: 20040617
  Transmission Date: 20050107
  Serious: Yes (Life-Threatening)
  Sender: FDA-Public Use
  Company Number: None

PATIENT
  Age: 72 Year
  Sex: Male
  Weight: 78 kg

DRUGS (1)
  1. CETUXIMAB [Suspect]
     Indication: RECTAL CANCER
     Dosage: 20 MG IV
     Route: 042
     Dates: start: 20040324, end: 20040324

REACTIONS (7)
  - BRONCHOSPASM [None]
  - COUGH [None]
  - HYPOTENSION [None]
  - RASH [None]
  - TACHYCARDIA [None]
  - URTICARIA [None]
  - WHEEZING [None]
